FAERS Safety Report 16902995 (Version 1)
Quarter: 2019Q4

REPORT INFORMATION
  Report Type: Spontaneous
  Country: US (occurrence: US)
  Receive Date: 20190816
  Receipt Date: 20190816
  Transmission Date: 20200122
  Serious: Yes (Other)
  Sender: FDA-Public Use
  Company Number: None

PATIENT
  Age: 58 Year
  Sex: Male
  Weight: 83.91 kg

DRUGS (3)
  1. TROGARZO [Suspect]
     Active Substance: IBALIZUMAB-UIYK
     Indication: HIV INFECTION
     Dosage: ?          OTHER ROUTE:IV  LOADING DOSE?
     Dates: start: 20180815
  2. TROGARZO [Suspect]
     Active Substance: IBALIZUMAB-UIYK
     Indication: PATHOGEN RESISTANCE
     Dosage: ?          OTHER ROUTE:IV  LOADING DOSE?
     Dates: start: 20180815
  3. TROGARZO [Suspect]
     Active Substance: IBALIZUMAB-UIYK
     Route: 042

REACTIONS (1)
  - Kaposi^s sarcoma [None]

NARRATIVE: CASE EVENT DATE: 20190725
